FAERS Safety Report 4653669-0 (Version None)
Quarter: 2005Q2

REPORT INFORMATION
  Report Type: 
  Country: None (occurrence: None)
  Receive Date: 20050408
  Receipt Date: 20050111
  Transmission Date: 20051028
  Serious: No
  Sender: FDA-Public Use
  Company Number: 230178K05USA

PATIENT
  Age: 52 Year
  Sex: Female
  Weight: 63.5036 kg

DRUGS (11)
  1. REBIF [Suspect]
     Indication: MULTIPLE SCLEROSIS
     Dosage: 44 MCG, 3 IN 1 WEEKS, SUBCUTANEOUS
     Route: 058
     Dates: start: 20041105
  2. VICOPROFEN(VICOPROFEN) [Concomitant]
  3. EXTRA STRENGTH TYLENOL [Concomitant]
  4. FIORINAL [Concomitant]
  5. PROVIGIL [Concomitant]
  6. LORTAB [Concomitant]
  7. PROMETHAZINE [Concomitant]
  8. OXYCONTIN [Concomitant]
  9. DEMERAL(PETHIDINE HYDROCHLORIDE) [Concomitant]
  10. IMITREX [Concomitant]
  11. PERCOCET(OXCOCET) [Concomitant]

REACTIONS (7)
  - BONE PAIN [None]
  - FATIGUE [None]
  - INFLUENZA [None]
  - INFLUENZA LIKE ILLNESS [None]
  - MIGRAINE [None]
  - MULTIPLE SCLEROSIS [None]
  - MUSCULOSKELETAL STIFFNESS [None]
